FAERS Safety Report 16868299 (Version 1)
Quarter: 2019Q4

REPORT INFORMATION
  Report Type: Spontaneous
  Country: US (occurrence: US)
  Receive Date: 20190930
  Receipt Date: 20190930
  Transmission Date: 20200122
  Serious: Yes (Disabling)
  Sender: FDA-Public Use
  Company Number: None

PATIENT
  Age: 62 Year
  Sex: Male
  Weight: 117 kg

DRUGS (4)
  1. VITAMIN D [Concomitant]
     Active Substance: VITAMIN D NOS
  2. LEVETIRACETAM. [Concomitant]
     Active Substance: LEVETIRACETAM
  3. CIPROFLOXACIN HCL [Suspect]
     Active Substance: CIPROFLOXACIN HYDROCHLORIDE
     Indication: CYSTITIS
     Dosage: ?          QUANTITY:1 TABLET(S);?
     Route: 048
     Dates: start: 20181005, end: 20181007
  4. FISH OIL [Concomitant]
     Active Substance: FISH OIL

REACTIONS (12)
  - Nausea [None]
  - Seizure [None]
  - Disorientation [None]
  - Loss of consciousness [None]
  - Seizure cluster [None]
  - Vomiting [None]
  - Joint injury [None]
  - Parosmia [None]
  - Fall [None]
  - Back pain [None]
  - Back injury [None]
  - Hallucination, visual [None]

NARRATIVE: CASE EVENT DATE: 20181008
